FAERS Safety Report 5520306-2 (Version None)
Quarter: 2007Q4

REPORT INFORMATION
  Report Type: 
  Country: None (occurrence: None)
  Receive Date: 20071119
  Receipt Date: 20071107
  Transmission Date: 20080405
  Serious: Yes (Other)
  Sender: FDA-Public Use
  Company Number: JP-BRISTOL-MYERS SQUIBB COMPANY-13606777

PATIENT
  Age: 4 Year
  Sex: Male

DRUGS (6)
  1. ENDOXAN [Suspect]
     Indication: MALIGNANT NEOPLASM OF PLEURA
  2. LASTET [Suspect]
     Indication: MALIGNANT NEOPLASM OF PLEURA
  3. ONCOVIN [Suspect]
     Indication: MALIGNANT NEOPLASM OF PLEURA
  4. RANDA [Concomitant]
     Indication: MALIGNANT NEOPLASM OF PLEURA
  5. ADRIACIN [Concomitant]
     Indication: MALIGNANT NEOPLASM OF PLEURA
  6. THERARUBICIN [Concomitant]

REACTIONS (1)
  - ACUTE LYMPHOCYTIC LEUKAEMIA [None]
